FAERS Safety Report 6014146-8 (Version None)
Quarter: 2008Q4

REPORT INFORMATION
  Report Type: 
  Country: None (occurrence: None)
  Receive Date: 20081219
  Receipt Date: 20080115
  Transmission Date: 20090506
  Serious: No
  Sender: FDA-Public Use
  Company Number: A0703350A

PATIENT
  Age: 80 Year
  Sex: Male

DRUGS (12)
  1. AVODART [Suspect]
     Indication: BENIGN PROSTATIC HYPERPLASIA
     Dosage: .5MG PER DAY
     Route: 048
  2. CARDURA [Concomitant]
  3. NEURONTIN [Concomitant]
  4. PROZAC [Concomitant]
  5. CELEBREX [Concomitant]
  6. ASPIRIN [Concomitant]
  7. ASCORBIC ACID [Concomitant]
  8. VITAMIN A [Concomitant]
  9. VITAMIN B COMPLEX CAP [Concomitant]
  10. VITAMIN D [Concomitant]
  11. SAW PALMETTO [Concomitant]
  12. BETA CAROTENE [Concomitant]

REACTIONS (1)
  - DRUG INEFFECTIVE [None]
